FAERS Safety Report 16209665 (Version 1)
Quarter: 2019Q2

REPORT INFORMATION
  Report Type: Spontaneous
  Country: TW (occurrence: TW)
  Receive Date: 20190417
  Receipt Date: 20190417
  Transmission Date: 20190711
  Serious: Yes (Death)
  Sender: FDA-Public Use
  Company Number: TW-PFIZER INC-2018135561

PATIENT
  Age: 71 Year
  Sex: Male

DRUGS (2)
  1. INLYTA [Suspect]
     Active Substance: AXITINIB
     Indication: RENAL CELL CARCINOMA
     Dosage: 5 MG, QD
     Route: 048
     Dates: start: 20180213, end: 20180401
  2. INLYTA [Suspect]
     Active Substance: AXITINIB
     Dosage: 5 MG, CYCLIC,1DF/QD AND 2DF/QD TAKE ALTERNATELY (3 DF FOR 2DAYS))
     Route: 048
     Dates: start: 20180402

REACTIONS (4)
  - Merycism [Recovered/Resolved]
  - Death [Fatal]
  - Nausea [Recovered/Resolved]
  - Decreased appetite [Recovered/Resolved]

NARRATIVE: CASE EVENT DATE: 2018
